FAERS Safety Report 23185415 (Version 1)
Quarter: 2023Q4

REPORT INFORMATION
  Report Type: Spontaneous
  Country: GB (occurrence: GB)
  Receive Date: 20231115
  Receipt Date: 20231115
  Transmission Date: 20240109
  Serious: Yes (Death)
  Sender: FDA-Public Use
  Company Number: GB-RECORDATI RARE DISEASE INC.-2023007649

PATIENT

DRUGS (1)
  1. CYSTADROPS [Suspect]
     Active Substance: CYSTEAMINE HYDROCHLORIDE
     Indication: Cystinosis
     Dosage: 1 GTT DROPS (1 DROP IN BOTH EYES 4 X A DAY)
     Route: 065

REACTIONS (1)
  - Death [Fatal]
